FAERS Safety Report 8176652-X (Version None)
Quarter: 2012Q1

REPORT INFORMATION
  Report Type: 
  Country: None (occurrence: None)
  Receive Date: 20120301
  Receipt Date: 20120222
  Transmission Date: 20120608
  Serious: Yes (Other)
  Sender: FDA-Public Use
  Company Number: DE-UCBSA-040848

PATIENT
  Sex: Male
  Weight: 85 kg

DRUGS (2)
  1. PREDNISOLONE [Concomitant]
     Indication: POLYARTHRITIS
     Dosage: FREQUENCY: 1
     Route: 048
     Dates: start: 19890101
  2. CERTOLIZUMAB PEGOL [Suspect]
     Indication: RHEUMATOID ARTHRITIS
     Route: 058
     Dates: start: 20100606

REACTIONS (1)
  - AUTOIMMUNE HEPATITIS [None]
